FAERS Safety Report 24623920 (Version 2)
Quarter: 2025Q1

REPORT INFORMATION
  Report Type: Spontaneous
  Country: FR (occurrence: FR)
  Receive Date: 20241115
  Receipt Date: 20250122
  Transmission Date: 20250408
  Serious: Yes (Other)
  Sender: AUROBINDO
  Company Number: FR-AstraZeneca-2024A201443

PATIENT
  Age: 51 Year
  Sex: Female

DRUGS (10)
  1. TAMOXIFEN [Suspect]
     Active Substance: TAMOXIFEN
     Indication: Thyroiditis fibrous chronic
     Dosage: 40 MILLIGRAM, ONCE A DAY (20 MILLIGRAM, BID)
     Route: 048
     Dates: end: 2009
  2. TAMOXIFEN [Suspect]
     Active Substance: TAMOXIFEN
     Dosage: 40 MILLIGRAM, ONCE A DAY (20 MILLIGRAM, BID)
     Route: 048
     Dates: end: 2009
  3. TAMOXIFEN [Suspect]
     Active Substance: TAMOXIFEN
     Dosage: 40 MILLIGRAM, ONCE A DAY (20 MILLIGRAM, BID)
     Route: 048
     Dates: end: 2009
  4. TAMOXIFEN [Suspect]
     Active Substance: TAMOXIFEN
     Dosage: 40 MILLIGRAM, ONCE A DAY (20 MILLIGRAM, BID)
     Route: 048
     Dates: end: 2009
  5. TAMOXIFEN [Suspect]
     Active Substance: TAMOXIFEN
     Dosage: 20 MILLIGRAM, ONCE A DAY (20 MILLIGRAM, QD)
     Route: 048
  6. TAMOXIFEN [Suspect]
     Active Substance: TAMOXIFEN
     Dosage: 20 MILLIGRAM, ONCE A DAY (20 MILLIGRAM, QD)
     Route: 048
  7. TAMOXIFEN [Suspect]
     Active Substance: TAMOXIFEN
     Dosage: 20 MILLIGRAM, ONCE A DAY (20 MILLIGRAM, QD)
     Route: 048
  8. TAMOXIFEN [Suspect]
     Active Substance: TAMOXIFEN
     Dosage: 20 MILLIGRAM, QD
     Route: 048
  9. LEVOTHYROXINE [Concomitant]
     Active Substance: LEVOTHYROXINE
     Indication: Hypothyroidism
     Route: 065
  10. PREDNISONE [Concomitant]
     Active Substance: PREDNISONE
     Indication: Product used for unknown indication
     Route: 065

REACTIONS (2)
  - Idiopathic orbital inflammation [Recovering/Resolving]
  - Off label use [Unknown]
